FAERS Safety Report 6035684-8 (Version None)
Quarter: 2009Q1

REPORT INFORMATION
  Report Type: 
  Country: None (occurrence: None)
  Receive Date: 20090113
  Receipt Date: 20090105
  Transmission Date: 20090719
  Serious: Yes (Hospitalization)
  Sender: FDA-Public Use
  Company Number: US-BIOGENIDEC-2008BI016326

PATIENT
  Age: 56 Year
  Sex: Female
  Weight: 46 kg

DRUGS (3)
  1. AVONEX [Suspect]
     Indication: MULTIPLE SCLEROSIS
     Route: 030
     Dates: start: 20030101, end: 20030101
  2. AVONEX [Suspect]
     Route: 030
     Dates: start: 20030101, end: 20080501
  3. KLONOPIN [Concomitant]
     Indication: TREMOR

REACTIONS (9)
  - ANEURYSM [None]
  - ARTERIAL DISORDER [None]
  - CONVULSION [None]
  - DYSPHONIA [None]
  - EJECTION FRACTION DECREASED [None]
  - EYE EXCISION [None]
  - FINGER AMPUTATION [None]
  - HYPERSENSITIVITY [None]
  - WEIGHT DECREASED [None]
